FAERS Safety Report 14007468 (Version 10)
Quarter: 2018Q3

REPORT INFORMATION
  Report Type: Report from Study
  Country: US (occurrence: US)
  Receive Date: 20170925
  Receipt Date: 20180817
  Transmission Date: 20181010
  Serious: Yes (Other)
  Sender: FDA-Public Use
  Company Number: US-TESARO, INC-US-2017TSO00410

PATIENT
  Age: 61 Year
  Sex: Female

DRUGS (9)
  1. ZEJULA [Suspect]
     Active Substance: NIRAPARIB
     Dosage: 300 MG, QD
     Route: 048
  2. ZEJULA [Suspect]
     Active Substance: NIRAPARIB
     Dosage: 300 MG, QD
     Route: 048
     Dates: start: 20170617
  3. ZEJULA [Suspect]
     Active Substance: NIRAPARIB
     Dosage: 300 MG, QD, ALT WITH 200 MG OCCASIONALLY
     Route: 048
  4. ZEJULA [Suspect]
     Active Substance: NIRAPARIB
     Dosage: 300 MG, QD, ALTERNATING WITH 200 MG OCCASIONALLY
     Route: 048
  5. ZEJULA [Suspect]
     Active Substance: NIRAPARIB
     Dosage: 300 MG, QD
     Route: 048
  6. ZEJULA [Suspect]
     Active Substance: NIRAPARIB
     Indication: OVARIAN CANCER
     Dosage: 300 MG, QD
     Route: 048
     Dates: start: 20170519, end: 20170522
  7. ZEJULA [Suspect]
     Active Substance: NIRAPARIB
     Dosage: 100 MG, QD
     Route: 048
     Dates: start: 20170523
  8. ZEJULA [Suspect]
     Active Substance: NIRAPARIB
     Dosage: 300 MG, QD, ALTERNATING WITH 200 MG OCCASIONALLY
     Route: 048
  9. ZEJULA [Suspect]
     Active Substance: NIRAPARIB
     Dosage: 300 MG, UNK
     Route: 048

REACTIONS (36)
  - Inappropriate schedule of drug administration [Not Recovered/Not Resolved]
  - Asthenia [Not Recovered/Not Resolved]
  - Gastrointestinal wall thickening [Not Recovered/Not Resolved]
  - Palmar-plantar erythrodysaesthesia syndrome [Not Recovered/Not Resolved]
  - Pain [Not Recovered/Not Resolved]
  - Dizziness [Not Recovered/Not Resolved]
  - Diarrhoea [Not Recovered/Not Resolved]
  - Nasal congestion [Not Recovered/Not Resolved]
  - Malaise [Recovering/Resolving]
  - Emotional distress [Not Recovered/Not Resolved]
  - Flatulence [Unknown]
  - Abdominal distension [Unknown]
  - Myalgia [Not Recovered/Not Resolved]
  - Muscular weakness [Not Recovered/Not Resolved]
  - Abdominal discomfort [Recovered/Resolved]
  - Chills [Not Recovered/Not Resolved]
  - Dyspepsia [Not Recovered/Not Resolved]
  - Infection [Unknown]
  - Accidental exposure to product [Unknown]
  - Abdominal pain upper [Not Recovered/Not Resolved]
  - Nausea [Not Recovered/Not Resolved]
  - Cough [Not Recovered/Not Resolved]
  - Blood count abnormal [Recovered/Resolved]
  - Gastrointestinal stoma complication [Not Recovered/Not Resolved]
  - Skin disorder [Not Recovered/Not Resolved]
  - Gastrointestinal sounds abnormal [Unknown]
  - Intentional product misuse [Not Recovered/Not Resolved]
  - Vomiting [Unknown]
  - Constipation [Recovered/Resolved]
  - Arthralgia [Not Recovered/Not Resolved]
  - Pyrexia [Recovered/Resolved]
  - Retching [Not Recovered/Not Resolved]
  - Abdominal rigidity [Unknown]
  - Drug dose omission [Unknown]
  - Renal disorder [Not Recovered/Not Resolved]
  - Bone pain [Not Recovered/Not Resolved]

NARRATIVE: CASE EVENT DATE: 2017
